FAERS Safety Report 4842475-X (Version None)
Quarter: 2005Q4

REPORT INFORMATION
  Report Type: 
  Country: None (occurrence: None)
  Receive Date: 20051129
  Receipt Date: 20051110
  Transmission Date: 20060501
  Serious: Yes (Other)
  Sender: FDA-Public Use
  Company Number: US200511001517

PATIENT
  Sex: Female

DRUGS (1)
  1. INSULIN [Suspect]
     Dosage: TRANSPLACENTAL
     Route: 064

REACTIONS (5)
  - CAESAREAN SECTION [None]
  - DRUG EXPOSURE BEFORE PREGNANCY [None]
  - FEEDING DISORDER NEONATAL [None]
  - MATERNAL CONDITION AFFECTING FOETUS [None]
  - PREMATURE BABY [None]
